FAERS Safety Report 4608405-0 (Version None)
Quarter: 2005Q1

REPORT INFORMATION
  Report Type: 
  Country: None (occurrence: None)
  Receive Date: 20050311
  Receipt Date: 20050228
  Transmission Date: 20050727
  Serious: Yes (Other)
  Sender: FDA-Public Use
  Company Number: GBWYE468602MAR05

PATIENT
  Age: 25 Year
  Sex: Female

DRUGS (2)
  1. TAZOCIN (PIPERACILLIN/TAZOBACTAM, INJECTION) [Suspect]
     Indication: LOWER RESPIRATORY TRACT INFECTION
     Dosage: 4.5 MG 4X PER 1 DAY, INTRAVENOUS
     Route: 042
     Dates: start: 20050203, end: 20050209
  2. OSELTAMIVIR (OSELTAMIVIR,  , 0) [Suspect]
     Indication: VIRAL INFECTION
     Dosage: 75 MG 2X PER 1 DAY, ORAL
     Route: 048
     Dates: start: 20050205, end: 20050208

REACTIONS (1)
  - VISUAL ACUITY REDUCED [None]
